FAERS Safety Report 12124897 (Version 1)
Quarter: 2016Q1

REPORT INFORMATION
  Report Type: Spontaneous
  Country: US (occurrence: US)
  Receive Date: 20160229
  Receipt Date: 20160229
  Transmission Date: 20160526
  Serious: Yes (Death)
  Sender: FDA-Public Use
  Company Number: US-BEH-2016059236

PATIENT
  Age: 62 Year
  Sex: Male
  Weight: 54 kg

DRUGS (19)
  1. PRAVASTATIN [Concomitant]
     Active Substance: PRAVASTATIN\PRAVASTATIN SODIUM
  2. ASPIRIN. [Concomitant]
     Active Substance: ASPIRIN
  3. EPIPEN [Concomitant]
     Active Substance: EPINEPHRINE
  4. CITALOPRAM [Concomitant]
     Active Substance: CITALOPRAM HYDROBROMIDE
  5. MUCINEX [Concomitant]
     Active Substance: GUAIFENESIN
  6. ALPRAZOLAM. [Concomitant]
     Active Substance: ALPRAZOLAM
  7. ACTEAMINOPHEN [Concomitant]
     Active Substance: ACETAMINOPHEN
  8. PREDNISONE. [Concomitant]
     Active Substance: PREDNISONE
  9. CARDIZEM [Concomitant]
     Active Substance: DILTIAZEM HYDROCHLORIDE
  10. OMEPRAZOLE. [Concomitant]
     Active Substance: OMEPRAZOLE
  11. LIDOCAINE/PRILOCAINE [Concomitant]
  12. XANAX [Concomitant]
     Active Substance: ALPRAZOLAM
  13. ADVAIR HFA [Concomitant]
     Active Substance: FLUTICASONE PROPIONATE\SALMETEROL XINAFOATE
  14. MULTIVITAMIN [Concomitant]
     Active Substance: VITAMINS
  15. ZEMAIRA [Suspect]
     Active Substance: .ALPHA.1-PROTEINASE INHIBITOR HUMAN
     Indication: CHRONIC OBSTRUCTIVE PULMONARY DISEASE
     Route: 042
     Dates: start: 20121106
  16. NORMAL SALINE [Concomitant]
     Active Substance: SODIUM CHLORIDE
  17. NICOTINE. [Concomitant]
     Active Substance: NICOTINE
  18. OXYGEN. [Concomitant]
     Active Substance: OXYGEN
  19. ZOLPIDEM [Concomitant]
     Active Substance: ZOLPIDEM\ZOLPIDEM TARTRATE

REACTIONS (1)
  - Death [Fatal]

NARRATIVE: CASE EVENT DATE: 20160216
